FAERS Safety Report 4988309-4 (Version None)
Quarter: 2006Q2

REPORT INFORMATION
  Report Type: 
  Country: None (occurrence: None)
  Receive Date: 20060425
  Receipt Date: 20060412
  Transmission Date: 20061013
  Serious: Yes (Hospitalization)
  Sender: FDA-Public Use
  Company Number: 2005076844

PATIENT
  Age: 35 Year
  Sex: Male

DRUGS (1)
  1. GENOTROPIN [Suspect]
     Dosage: 0.6 MG (0.6 MG, 6 INJECTIONS EVERY WEEK)

REACTIONS (4)
  - IATROGENIC INJURY [None]
  - INTESTINAL PERFORATION [None]
  - MALAISE [None]
  - POST PROCEDURAL COMPLICATION [None]
